FAERS Safety Report 25883603 (Version 2)
Quarter: 2025Q4

REPORT INFORMATION
  Report Type: Report from Study
  Country: GB (occurrence: GB)
  Receive Date: 20251006
  Receipt Date: 20251018
  Transmission Date: 20260117
  Serious: Yes (Hospitalization, Other)
  Sender: CELLTRION
  Company Number: GB-CELLTRION INC.-2025GB035570

PATIENT

DRUGS (5)
  1. ADALIMUMAB-AATY [Suspect]
     Active Substance: ADALIMUMAB-AATY
     Indication: Product used for unknown indication
     Dosage: 40 MG, EVERY 2 WEEKS
     Route: 058
     Dates: start: 20250902
  2. ADALIMUMAB-AATY [Suspect]
     Active Substance: ADALIMUMAB-AATY
     Dosage: 40 MG, EVERY 2 WEEKS
     Route: 058
     Dates: start: 20250916
  3. ADALIMUMAB-AATY [Suspect]
     Active Substance: ADALIMUMAB-AATY
     Dosage: 40 MG, EVERY 2 WEEKS
     Route: 058
     Dates: start: 20251008
  4. ASPIRIN [Concomitant]
     Active Substance: ASPIRIN
     Dosage: 75 MILLIGRAM, DAILY
  5. THYROXINE [Concomitant]
     Active Substance: LEVOTHYROXINE
     Dosage: 75 MILLIGRAM, DAILY

REACTIONS (2)
  - Appendicitis [Recovering/Resolving]
  - Intentional dose omission [Unknown]

NARRATIVE: CASE EVENT DATE: 20250928
